FAERS Safety Report 9824725 (Version 3)
Quarter: 2014Q1

REPORT INFORMATION
  Report Type: Report from Study
  Country: DK (occurrence: DK)
  Receive Date: 20140117
  Receipt Date: 20140317
  Transmission Date: 20141002
  Serious: Yes (Hospitalization, Disabling, Other)
  Sender: FDA-Public Use
  Company Number: DK-BEH-2013035017

PATIENT
  Age: 57 Year
  Sex: Male

DRUGS (2)
  1. ZEMAIRA [Suspect]
     Indication: ALPHA-1 ANTI-TRYPSIN DEFICIENCY
     Route: 042
     Dates: start: 20120320
  2. ZEMAIRA [Suspect]
     Route: 042
     Dates: start: 20130219

REACTIONS (1)
  - Deep vein thrombosis [Recovered/Resolved]
